FAERS Safety Report 11314114 (Version 2)
Quarter: 2015Q3

REPORT INFORMATION
  Report Type: Spontaneous
  Country: JP (occurrence: JP)
  Receive Date: 20150727
  Receipt Date: 20150807
  Transmission Date: 20151125
  Serious: Yes (Hospitalization)
  Sender: FDA-Public Use
  Company Number: JP-ASTRAZENECA-2015SE72604

PATIENT
  Age: 85 Year
  Sex: Male

DRUGS (4)
  1. MEDICINE [Concomitant]
     Active Substance: UNSPECIFIED INGREDIENT
     Indication: BENIGN PROSTATIC HYPERPLASIA
  2. MEDICINE [Concomitant]
     Active Substance: UNSPECIFIED INGREDIENT
     Indication: ASTHMA
  3. SEROQUEL [Suspect]
     Active Substance: QUETIAPINE FUMARATE
     Route: 048
  4. MEDICINE [Concomitant]
     Active Substance: UNSPECIFIED INGREDIENT
     Indication: DEMENTIA

REACTIONS (1)
  - Heat illness [Recovered/Resolved]
